FAERS Safety Report 9941137 (Version 2)
Quarter: 2014Q2

REPORT INFORMATION
  Report Type: Spontaneous
  Country: US (occurrence: US)
  Receive Date: 20140303
  Receipt Date: 20140401
  Transmission Date: 20141212
  Serious: Yes (Other)
  Sender: FDA-Public Use
  Company Number: US-PFIZER INC-2014058521

PATIENT
  Age: 61 Year
  Sex: Female

DRUGS (2)
  1. LIPITOR [Suspect]
     Dosage: UNK
     Dates: start: 2008
  2. LOVASTATIN [Suspect]
     Indication: BLOOD CHOLESTEROL INCREASED
     Dosage: 10 MG, UNK
     Dates: start: 20140104

REACTIONS (6)
  - Rhabdomyolysis [Unknown]
  - Coronary artery stenosis [Unknown]
  - Abdominal pain [Unknown]
  - Ovarian disorder [Unknown]
  - Muscle swelling [Unknown]
  - Feeling hot [Unknown]
